FAERS Safety Report 9733246 (Version 1)
Quarter: 2013Q4

REPORT INFORMATION
  Report Type: Spontaneous
  Country: US (occurrence: US)
  Receive Date: 20131204
  Receipt Date: 20131204
  Transmission Date: 20140711
  Serious: No
  Sender: FDA-Public Use
  Company Number: US-BAXTER-2013BAX046271

PATIENT
  Sex: Female

DRUGS (6)
  1. GAMMAGARD LIQUID [Suspect]
     Indication: POLYMYOSITIS
     Route: 042
  2. GAMMAGARD LIQUID [Suspect]
     Indication: OFF LABEL USE
  3. PRIVIGEN [Concomitant]
     Indication: POLYMYOSITIS
     Route: 065
  4. RITUXIMAB [Concomitant]
     Indication: PRODUCT USED FOR UNKNOWN INDICATION
     Route: 065
  5. TYLENOL [Concomitant]
     Indication: PREMEDICATION
     Route: 065
  6. SOLUMEDROL [Concomitant]
     Indication: PREMEDICATION
     Route: 065

REACTIONS (1)
  - Headache [Recovered/Resolved]
